FAERS Safety Report 24141206 (Version 2)
Quarter: 2024Q4

REPORT INFORMATION
  Report Type: Spontaneous
  Country: FR (occurrence: FR)
  Receive Date: 20240726
  Receipt Date: 20241009
  Transmission Date: 20250114
  Serious: Yes (Other)
  Sender: GRIFOLS
  Company Number: FR-IGSA-BIG0029904

PATIENT
  Age: 52 Year
  Sex: Male
  Weight: 60 kg

DRUGS (2)
  1. XEMBIFY [Suspect]
     Active Substance: HUMAN IMMUNOGLOBULIN G
     Indication: Chronic inflammatory demyelinating polyradiculoneuropathy
     Dosage: 22 GRAM, Q.WK.
     Route: 058
     Dates: start: 20240702
  2. XEMBIFY [Suspect]
     Active Substance: HUMAN IMMUNOGLOBULIN G
     Indication: Product use in unapproved indication
     Dosage: 11 GRAM, UNKNOWN
     Route: 058
     Dates: start: 20240708, end: 20240711

REACTIONS (5)
  - Infusion site necrosis [Recovering/Resolving]
  - Infusion site plaque [Recovering/Resolving]
  - Infusion site inflammation [Not Recovered/Not Resolved]
  - Infusion site discolouration [Not Recovered/Not Resolved]
  - Infusion site scar [Unknown]

NARRATIVE: CASE EVENT DATE: 20240716
